FAERS Safety Report 5871208-3 (Version None)
Quarter: 2008Q3

REPORT INFORMATION
  Report Type: 
  Country: None (occurrence: None)
  Receive Date: 20080829
  Receipt Date: 20080812
  Transmission Date: 20090109
  Serious: Yes (Hospitalization)
  Sender: FDA-Public Use
  Company Number: 2008BM000156

PATIENT
  Age: 5 Year
  Sex: Male
  Weight: 11 kg

DRUGS (4)
  1. NAGLAZYME [Suspect]
     Indication: MUCOPOLYSACCHARIDOSIS VI
     Dosage: 10 MG;QW;IVDRP
     Route: 041
     Dates: start: 20060101
  2. CETIRIZIN [Concomitant]
  3. CEFALEXIN [Concomitant]
  4. OXYGEN [Concomitant]

REACTIONS (3)
  - ADENOIDECTOMY [None]
  - MYRINGOTOMY [None]
  - TONSILLECTOMY [None]
